FAERS Safety Report 9607451 (Version 1)
Quarter: 2013Q4

REPORT INFORMATION
  Report Type: Spontaneous
  Country: US (occurrence: None)
  Receive Date: 20131007
  Receipt Date: 20131007
  Transmission Date: 20140711
  Serious: Yes (Disabling)
  Sender: FDA-Public Use
  Company Number: None

PATIENT
  Age: 61 Year
  Sex: Female
  Weight: 47.63 kg

DRUGS (1)
  1. RECLAST [Suspect]
     Indication: OSTEOPOROSIS
     Dates: start: 20130529

REACTIONS (11)
  - Asthenia [None]
  - Arthralgia [None]
  - Arthralgia [None]
  - Neck pain [None]
  - Musculoskeletal pain [None]
  - Musculoskeletal chest pain [None]
  - Arthralgia [None]
  - Pain in extremity [None]
  - Fatigue [None]
  - Injection site pain [None]
  - Incorrect dose administered [None]
